FAERS Safety Report 20020560 (Version 1)
Quarter: 2021Q4

REPORT INFORMATION
  Report Type: Spontaneous
  Country: NL (occurrence: NL)
  Receive Date: 20211101
  Receipt Date: 20211101
  Transmission Date: 20220304
  Serious: Yes (Other)
  Sender: FDA-Public Use
  Company Number: NL-CMP PHARMA-2021CMP00024

PATIENT
  Age: 63 Year
  Sex: Male

DRUGS (3)
  1. TRIAMCINOLONE [Suspect]
     Active Substance: TRIAMCINOLONE
     Indication: Psoriasis
     Route: 061
  2. ALBUTEROL [Concomitant]
     Active Substance: ALBUTEROL
     Route: 065
  3. STELARA [Concomitant]
     Active Substance: USTEKINUMAB
     Route: 065

REACTIONS (2)
  - Pneumonia lipoid [Recovering/Resolving]
  - Chronic respiratory failure [Recovering/Resolving]
